FAERS Safety Report 6611988-2 (Version None)
Quarter: 2010Q1

REPORT INFORMATION
  Report Type: 
  Country: None (occurrence: None)
  Receive Date: 20100225
  Receipt Date: 20100216
  Transmission Date: 20100710
  Serious: Yes (Hospitalization)
  Sender: FDA-Public Use
  Company Number: 2008-183090-NL

PATIENT
  Age: 20 Year
  Sex: Female
  Weight: 77.1 kg

DRUGS (5)
  1. NUVARING [Suspect]
     Indication: CONTRACEPTION
     Dates: start: 20060301, end: 20071128
  2. CLARITHROMYCIN [Concomitant]
  3. RETIN-A [Concomitant]
  4. SULFAMETHOXAZOLE [Concomitant]
  5. METRONIDAZOLE [Concomitant]

REACTIONS (9)
  - ANXIETY [None]
  - CYSTITIS [None]
  - DEEP VEIN THROMBOSIS [None]
  - DYSPNOEA [None]
  - EMOTIONAL DISORDER [None]
  - OVARIAN CYST RUPTURED [None]
  - PAIN [None]
  - PELVIC PAIN [None]
  - URINARY TRACT INFECTION [None]
